FAERS Safety Report 17859988 (Version 2)
Quarter: 2020Q2

REPORT INFORMATION
  Report Type: Report from Study
  Country: CA (occurrence: CA)
  Receive Date: 20200604
  Receipt Date: 20200622
  Transmission Date: 20200714
  Serious: Yes (Other)
  Sender: FDA-Public Use
  Company Number: CA-JNJFOC-20200532428

PATIENT
  Age: 69 Year
  Sex: Male
  Weight: 84.9 kg

DRUGS (3)
  1. STELARA [Suspect]
     Active Substance: USTEKINUMAB
     Indication: CROHN^S DISEASE
     Route: 058
     Dates: start: 20190924
  2. TYLENOL ARTHRITIS PAIN [Concomitant]
     Active Substance: ACETAMINOPHEN
     Indication: PRODUCT USED FOR UNKNOWN INDICATION
     Route: 065
  3. STELARA [Suspect]
     Active Substance: USTEKINUMAB

REACTIONS (8)
  - Chest pain [Unknown]
  - Insomnia [Unknown]
  - Crohn^s disease [Unknown]
  - Therapeutic product effect decreased [Unknown]
  - Pulmonary mass [Unknown]
  - Anxiety [Unknown]
  - Energy increased [Unknown]
  - Myalgia [Unknown]

NARRATIVE: CASE EVENT DATE: 20200609
